FAERS Safety Report 11561207 (Version 1)
Quarter: 2015Q3

REPORT INFORMATION
  Report Type: Report from Study
  Country: BR (occurrence: BR)
  Receive Date: 20150928
  Receipt Date: 20150928
  Transmission Date: 20151125
  Serious: Yes (Hospitalization)
  Sender: FDA-Public Use
  Company Number: BR-ABBVIE-15K-020-1468225-00

PATIENT
  Age: 31 Year
  Sex: Female
  Weight: 80 kg

DRUGS (5)
  1. HUMIRA [Suspect]
     Active Substance: ADALIMUMAB
     Indication: CROHN^S DISEASE
     Dosage: WEEK 0, LOADING DOSE
     Route: 058
     Dates: start: 20131204, end: 20131204
  2. HUMIRA [Suspect]
     Active Substance: ADALIMUMAB
     Dosage: WEEK 1, LOADING DOSE
     Route: 058
     Dates: start: 201312, end: 201312
  3. HUMIRA [Suspect]
     Active Substance: ADALIMUMAB
     Dosage: MAINTENANCE DOSES
     Route: 058
     Dates: end: 20150828
  4. PANTOPRAZOLE [Concomitant]
     Active Substance: PANTOPRAZOLE SODIUM
     Indication: GASTRITIS
     Route: 048
     Dates: start: 2011
  5. MICROPIL [Concomitant]
     Indication: CONTRACEPTION
     Route: 048
     Dates: start: 2008

REACTIONS (7)
  - Asthmatic crisis [Recovered/Resolved]
  - Injection site pain [Recovered/Resolved]
  - Back pain [Unknown]
  - Headache [Unknown]
  - Chest pain [Unknown]
  - Injection site rash [Recovered/Resolved]
  - Injection site erythema [Recovered/Resolved]

NARRATIVE: CASE EVENT DATE: 201409
